FAERS Safety Report 11215958 (Version 2)
Quarter: 2015Q2

REPORT INFORMATION
  Report Type: Spontaneous
  Country: FR (occurrence: FR)
  Receive Date: 20150624
  Receipt Date: 20150625
  Transmission Date: 20150821
  Serious: Yes (Hospitalization)
  Sender: FDA-Public Use
  Company Number: FR-ABBVIE-15K-056-1411009-00

PATIENT
  Age: 42 Year
  Sex: Male

DRUGS (3)
  1. ESOMEPRAZOLE [Concomitant]
     Active Substance: ESOMEPRAZOLE
     Indication: GASTROOESOPHAGEAL REFLUX DISEASE
  2. HUMIRA [Suspect]
     Active Substance: ADALIMUMAB
     Indication: ANKYLOSING SPONDYLITIS
     Route: 058
     Dates: end: 20150412
  3. KENZEN [Concomitant]
     Active Substance: CANDESARTAN
     Indication: HYPERTENSION

REACTIONS (7)
  - Hypersensitivity vasculitis [Unknown]
  - IgA nephropathy [Unknown]
  - Haematuria [Unknown]
  - Abdominal pain upper [Unknown]
  - Arthritis [Unknown]
  - Oedema peripheral [Unknown]
  - Vasculitis necrotising [Unknown]

NARRATIVE: CASE EVENT DATE: 20150415
